FAERS Safety Report 9782141 (Version 18)
Quarter: 2015Q3

REPORT INFORMATION
  Report Type: Report from Study
  Country: CA (occurrence: CA)
  Receive Date: 20131226
  Receipt Date: 20150805
  Transmission Date: 20151125
  Serious: Yes (Other)
  Sender: FDA-Public Use
  Company Number: CA-ROCHE-1199595

PATIENT
  Age: 39 Year
  Sex: Male
  Weight: 110.9 kg

DRUGS (24)
  1. AVASTIN [Suspect]
     Active Substance: BEVACIZUMAB
     Route: 042
     Dates: start: 20140613
  2. AVASTIN [Suspect]
     Active Substance: BEVACIZUMAB
     Route: 042
     Dates: start: 20141023
  3. CLOMIPRAMINE HCL [Concomitant]
     Active Substance: CLOMIPRAMINE
  4. CLONAZEPAM. [Concomitant]
     Active Substance: CLONAZEPAM
  5. RAMIPRIL. [Concomitant]
     Active Substance: RAMIPRIL
  6. AVASTIN [Suspect]
     Active Substance: BEVACIZUMAB
     Route: 042
     Dates: start: 20130405
  7. AMLODIPINE [Concomitant]
     Active Substance: AMLODIPINE BESYLATE
  8. AVASTIN [Suspect]
     Active Substance: BEVACIZUMAB
     Indication: MALIGNANT GLIOMA
     Route: 042
     Dates: start: 20130124
  9. AVASTIN [Suspect]
     Active Substance: BEVACIZUMAB
     Route: 042
     Dates: start: 20140828
  10. AVASTIN [Suspect]
     Active Substance: BEVACIZUMAB
     Route: 042
     Dates: start: 20150605
  11. DECADRON [Concomitant]
     Active Substance: DEXAMETHASONE
     Route: 065
     Dates: end: 201302
  12. KEPPRA [Concomitant]
     Active Substance: LEVETIRACETAM
  13. AVASTIN [Suspect]
     Active Substance: BEVACIZUMAB
     Route: 042
     Dates: start: 20131115
  14. AVASTIN [Suspect]
     Active Substance: BEVACIZUMAB
     Route: 042
     Dates: start: 20141218
  15. AVASTIN [Suspect]
     Active Substance: BEVACIZUMAB
     Route: 042
     Dates: start: 20150102
  16. AVASTIN [Suspect]
     Active Substance: BEVACIZUMAB
     Route: 042
     Dates: start: 20130614
  17. QUETIAPINE [Concomitant]
     Active Substance: QUETIAPINE
  18. ATORVASTATIN [Concomitant]
     Active Substance: ATORVASTATIN
  19. AVASTIN [Suspect]
     Active Substance: BEVACIZUMAB
     Route: 042
     Dates: start: 20130726
  20. AVASTIN [Suspect]
     Active Substance: BEVACIZUMAB
     Route: 042
     Dates: start: 20130920
  21. AVASTIN [Suspect]
     Active Substance: BEVACIZUMAB
     Route: 042
     Dates: start: 20140124
  22. AVASTIN [Suspect]
     Active Substance: BEVACIZUMAB
     Route: 042
     Dates: start: 20140307
  23. AVASTIN [Suspect]
     Active Substance: BEVACIZUMAB
     Route: 042
     Dates: start: 20150227
  24. AVASTIN [Suspect]
     Active Substance: BEVACIZUMAB
     Route: 042
     Dates: start: 20150327

REACTIONS (18)
  - Hypertension [Recovering/Resolving]
  - Weight abnormal [Unknown]
  - Lower respiratory tract infection [Recovered/Resolved]
  - Lymphocyte count decreased [Unknown]
  - Decreased activity [Unknown]
  - Nervousness [Unknown]
  - Haematocrit increased [Unknown]
  - Influenza like illness [Unknown]
  - Heart rate increased [Unknown]
  - Infusion related reaction [Unknown]
  - Off label use [Unknown]
  - Muscular weakness [Unknown]
  - Platelet count decreased [Recovered/Resolved]
  - Foot fracture [Recovering/Resolving]
  - Wheezing [Unknown]
  - Impaired self-care [Unknown]
  - Heart rate increased [Unknown]
  - Weight increased [Unknown]

NARRATIVE: CASE EVENT DATE: 20130319
